FAERS Safety Report 10473904 (Version 1)
Quarter: 2014Q3

REPORT INFORMATION
  Report Type: Spontaneous
  Country: IT (occurrence: IT)
  Receive Date: 20140924
  Receipt Date: 20140924
  Transmission Date: 20150326
  Serious: Yes (Other)
  Sender: FDA-Public Use
  Company Number: IT-SA-2014SA130303

PATIENT
  Age: 74 Year
  Sex: Male

DRUGS (1)
  1. OXALIPLATIN. [Suspect]
     Active Substance: OXALIPLATIN
     Route: 042
     Dates: start: 20140704, end: 20140816

REACTIONS (4)
  - Oedema [Unknown]
  - Dyspnoea [Unknown]
  - Hypersensitivity [Unknown]
  - Heat stroke [Unknown]

NARRATIVE: CASE EVENT DATE: 20140816
